FAERS Safety Report 25469520 (Version 2)
Quarter: 2025Q4

REPORT INFORMATION
  Report Type: Spontaneous
  Country: CA (occurrence: CA)
  Receive Date: 20250623
  Receipt Date: 20251124
  Transmission Date: 20260118
  Serious: Yes (Other)
  Sender: NOVARTIS
  Company Number: CA-002147023-NVSC2025CA097789

PATIENT
  Age: 90 Year
  Sex: Male

DRUGS (3)
  1. ZOMETA [Suspect]
     Active Substance: ZOLEDRONIC ACID
     Indication: Product used for unknown indication
     Dosage: UNK, QMO (SOLUTION INTRAVENOUS)
     Route: 065
  2. ELIGARD [Suspect]
     Active Substance: LEUPROLIDE ACETATE
     Indication: Prostate cancer
     Dosage: UNK (EVERY 6 MONTHS)
     Route: 058
     Dates: start: 20250107
  3. ELIGARD [Suspect]
     Active Substance: LEUPROLIDE ACETATE
     Dosage: UNK (POWDER FOR SUSPENSION, SUSTAINED-RELEASE)
     Route: 058

REACTIONS (3)
  - Skin cancer [Recovered/Resolved]
  - Back pain [Recovered/Resolved]
  - Wound [Recovered/Resolved]
